FAERS Safety Report 8512987-6 (Version None)
Quarter: 2012Q3

REPORT INFORMATION
  Report Type: 
  Country: None (occurrence: None)
  Receive Date: 20120716
  Receipt Date: 20120709
  Transmission Date: 20120928
  Serious: Yes (Other)
  Sender: FDA-Public Use
  Company Number: US-US-EMD SERONO, INC.-7031419

PATIENT
  Sex: Female

DRUGS (2)
  1. REBIF [Suspect]
     Indication: MULTIPLE SCLEROSIS
     Route: 058
     Dates: start: 20080205
  2. UNSPECIFIED MEDICATION [Concomitant]
     Indication: PREMEDICATION

REACTIONS (3)
  - COELIAC DISEASE [None]
  - INJECTION SITE ERYTHEMA [None]
  - INJECTION SITE MASS [None]
